FAERS Safety Report 11297306 (Version 1)
Quarter: 2015Q3

REPORT INFORMATION
  Report Type: Spontaneous
  Country: US (occurrence: US)
  Receive Date: 20150722
  Receipt Date: 20150722
  Transmission Date: 20151125
  Serious: No
  Sender: FDA-Public Use
  Company Number: US-ELI_LILLY_AND_COMPANY-US201104000300

PATIENT
  Age: 28 Year
  Sex: Male

DRUGS (1)
  1. EFFIENT [Suspect]
     Active Substance: PRASUGREL HYDROCHLORIDE
     Indication: ANEURYSM
     Dosage: UNK, UNKNOWN
     Dates: start: 201003

REACTIONS (2)
  - Rash [Unknown]
  - Alopecia [Unknown]
